FAERS Safety Report 5463134-9 (Version None)
Quarter: 2007Q3

REPORT INFORMATION
  Report Type: 
  Country: None (occurrence: None)
  Receive Date: 20070918
  Receipt Date: 20070918
  Transmission Date: 20080115
  Serious: No
  Sender: FDA-Public Use
  Company Number: None

PATIENT
  Age: 47 Year
  Sex: Female
  Weight: 75.2971 kg

DRUGS (1)
  1. MINOCYCLINE 100 MG THVA USA [Suspect]
     Indication: STAPHYLOCOCCAL INFECTION
     Dosage: 1 CAPSULE ONCE DAILY PO
     Route: 048
     Dates: start: 20070911, end: 20070912

REACTIONS (7)
  - ARTHRALGIA [None]
  - ASTHENIA [None]
  - CHILLS [None]
  - DRUG HYPERSENSITIVITY [None]
  - MALAISE [None]
  - PYREXIA [None]
  - VOMITING [None]
